FAERS Safety Report 22187175 (Version 1)
Quarter: 2023Q2

REPORT INFORMATION
  Report Type: Spontaneous
  Country: DE (occurrence: DE)
  Receive Date: 20230407
  Receipt Date: 20230407
  Transmission Date: 20230721
  Serious: Yes (Other)
  Sender: FDA-Public Use
  Company Number: DE-PFIZER INC-PV202300063155

PATIENT
  Age: 79 Year
  Sex: Male

DRUGS (5)
  1. LORLATINIB [Suspect]
     Active Substance: LORLATINIB
     Dosage: 100 MG
  2. ATORVASTATIN [Concomitant]
     Active Substance: ATORVASTATIN
     Dosage: 20 MG
  3. RAMIPRIL [Concomitant]
     Active Substance: RAMIPRIL
     Dosage: 5 MG
  4. BISOPROLOL [Concomitant]
     Active Substance: BISOPROLOL
  5. MELPERONE [Concomitant]
     Active Substance: MELPERONE

REACTIONS (4)
  - Bradycardia [Unknown]
  - Confusional state [Unknown]
  - Oedema [Unknown]
  - Pyrexia [Unknown]
